FAERS Safety Report 9704715 (Version 2)
Quarter: 2013Q4

REPORT INFORMATION
  Report Type: Spontaneous
  Country: NL (occurrence: NL)
  Receive Date: 20131122
  Receipt Date: 20131205
  Transmission Date: 20140711
  Serious: No
  Sender: FDA-Public Use
  Company Number: NL-B.I. PHARMACEUTICALS,INC./RIDGEFIELD-2013-BI-37868NL

PATIENT
  Sex: Female

DRUGS (5)
  1. PRADAXA [Suspect]
     Indication: ATRIAL FIBRILLATION
     Dates: start: 20131113, end: 20131115
  2. CHEMOTHERAPY [Concomitant]
     Indication: LYMPHOMA
  3. CHEMOTHERAPY [Concomitant]
     Indication: NON-HODGKIN^S LYMPHOMA
  4. RADIATION THERAPY [Concomitant]
     Indication: LYMPHOMA
  5. RADIATION THERAPY [Concomitant]
     Indication: NON-HODGKIN^S LYMPHOMA

REACTIONS (1)
  - Thrombosis [Unknown]
